FAERS Safety Report 10028214 (Version 2)
Quarter: 2014Q2

REPORT INFORMATION
  Report Type: Spontaneous
  Country: US (occurrence: US)
  Receive Date: 20140321
  Receipt Date: 20140519
  Transmission Date: 20141212
  Serious: Yes (Hospitalization)
  Sender: FDA-Public Use
  Company Number: US-GILEAD-2014-0097322

PATIENT
  Sex: Female

DRUGS (4)
  1. LETAIRIS [Suspect]
     Indication: PULMONARY HYPERTENSION
     Dosage: 10 MG, UNK
     Route: 048
     Dates: start: 20130301
  2. ASA [Concomitant]
     Dosage: 81 MG, UNK
  3. WARFARIN [Concomitant]
     Dosage: 2 MG, UNK
  4. PLAVIX [Concomitant]
     Dosage: 75 MG, UNK

REACTIONS (1)
  - Heart rate increased [Recovered/Resolved]
